FAERS Safety Report 11931292 (Version 1)
Quarter: 2016Q1

REPORT INFORMATION
  Report Type: Spontaneous
  Country: US (occurrence: US)
  Receive Date: 20160120
  Receipt Date: 20160120
  Transmission Date: 20160526
  Serious: No
  Sender: FDA-Public Use
  Company Number: US-INCYTE CORPORATION-2015IN004526

PATIENT
  Sex: Female
  Weight: 94.33 kg

DRUGS (10)
  1. JAKAFI [Suspect]
     Active Substance: RUXOLITINIB
     Dosage: 5 MG, BID
     Route: 048
     Dates: start: 201507
  2. LYRICA [Concomitant]
     Active Substance: PREGABALIN
     Indication: PARAESTHESIA
  3. ALLOPURINOL. [Concomitant]
     Active Substance: ALLOPURINOL
  4. JAKAFI [Suspect]
     Active Substance: RUXOLITINIB
     Indication: POLYCYTHAEMIA VERA
     Dosage: 10 MG, BID
     Route: 048
     Dates: start: 20150730
  5. INDOMETHACIN                       /00003801/ [Concomitant]
     Active Substance: INDOMETHACIN
     Indication: SLEEP DISORDER
  6. VITAMINS NOS [Concomitant]
     Active Substance: VITAMINS
  7. JAKAFI [Suspect]
     Active Substance: RUXOLITINIB
     Dosage: 5 MG, BID
     Route: 048
  8. ASPIRIN. [Concomitant]
     Active Substance: ASPIRIN
  9. BISOPROLOL W/HYDROCHLOROTHIAZIDE   /06833601/ [Concomitant]
     Active Substance: BISOPROLOL FUMARATE\HYDROCHLOROTHIAZIDE
  10. INDOMETHACIN                       /00003801/ [Concomitant]
     Active Substance: INDOMETHACIN
     Indication: PAIN IN EXTREMITY

REACTIONS (5)
  - Medication error [Unknown]
  - Weight increased [Not Recovered/Not Resolved]
  - Red blood cell count decreased [Unknown]
  - Impaired healing [Not Recovered/Not Resolved]
  - Hunger [Unknown]
